FAERS Safety Report 7805421-2 (Version None)
Quarter: 2011Q4

REPORT INFORMATION
  Report Type: 
  Country: None (occurrence: None)
  Receive Date: 20111010
  Receipt Date: 20110930
  Transmission Date: 20120403
  Serious: Yes (Other)
  Sender: FDA-Public Use
  Company Number: US-ASTRAZENECA-2011SE58965

PATIENT
  Sex: Male

DRUGS (3)
  1. DRY-TAB [Concomitant]
     Dosage: DAILY
     Route: 048
  2. SEROQUEL [Suspect]
     Indication: MOOD SWINGS
     Route: 048
     Dates: start: 20100101
  3. DALMANE [Concomitant]
     Route: 048

REACTIONS (2)
  - OFF LABEL USE [None]
  - HYDROCELE [None]
